FAERS Safety Report 14966560 (Version 2)
Quarter: 2018Q3

REPORT INFORMATION
  Report Type: Report from Study
  Country: None (occurrence: GB)
  Receive Date: 20180604
  Receipt Date: 20180709
  Transmission Date: 20181010
  Serious: Yes (Other)
  Sender: FDA-Public Use
  Company Number: GB-ABBVIE-18K-167-2375553-00

PATIENT
  Age: 42 Year
  Sex: Female
  Weight: 98 kg

DRUGS (1)
  1. HUMIRA [Suspect]
     Active Substance: ADALIMUMAB
     Indication: PSORIASIS
     Dosage: REPORTED AS FORTNIGHTLY
     Route: 058
     Dates: start: 20130403, end: 20130410

REACTIONS (3)
  - Demyelinating polyneuropathy [Not Recovered/Not Resolved]
  - Dysphagia [Unknown]
  - Vision blurred [Unknown]

NARRATIVE: CASE EVENT DATE: 20130410
